FAERS Safety Report 14679660 (Version 3)
Quarter: 2018Q3

REPORT INFORMATION
  Report Type: Report from Study
  Country: CA (occurrence: CA)
  Receive Date: 20180326
  Receipt Date: 20180926
  Transmission Date: 20181010
  Serious: No
  Sender: FDA-Public Use
  Company Number: CA-SA-2017SA267219

PATIENT
  Age: 65 Year
  Sex: Male

DRUGS (6)
  1. ACETAMINOPHEN. [Concomitant]
     Active Substance: ACETAMINOPHEN
     Indication: PREMEDICATION
     Dosage: 1 MG,UNK
     Route: 048
     Dates: start: 20171218
  2. REACTINE [CETIRIZINE HYDROCHLORIDE] [Concomitant]
     Active Substance: CETIRIZINE HYDROCHLORIDE
     Indication: PREMEDICATION
     Dosage: 5 MG,UNK
     Route: 048
     Dates: start: 20171218, end: 20171222
  3. RANITIDINE. [Concomitant]
     Active Substance: RANITIDINE
     Indication: PREMEDICATION
     Dosage: 150 MG,UNK
     Route: 048
     Dates: start: 20171218, end: 20171222
  4. ACICLOVIR [Concomitant]
     Active Substance: ACYCLOVIR
     Indication: PREMEDICATION
     Dosage: 200 MG,BID
     Route: 048
     Dates: start: 20171218
  5. ALEMTUZUMAB [Suspect]
     Active Substance: ALEMTUZUMAB
     Dosage: 12 MG,QD
     Route: 041
     Dates: start: 20171218, end: 20171222
  6. METHYLPREDNISOLONE. [Concomitant]
     Active Substance: METHYLPREDNISOLONE
     Indication: PREMEDICATION
     Dosage: 1 MG,UNK
     Route: 042
     Dates: start: 20171218, end: 20171222

REACTIONS (30)
  - Dysphonia [Recovered/Resolved]
  - Rash generalised [Recovered/Resolved]
  - Feeling abnormal [Recovered/Resolved]
  - Musculoskeletal chest pain [Recovered/Resolved]
  - Myalgia [Recovered/Resolved]
  - Crystal urine present [Not Recovered/Not Resolved]
  - Granulocyte count increased [Recovered/Resolved]
  - Heart rate increased [Recovered/Resolved]
  - Neutrophil percentage increased [Recovered/Resolved]
  - Protein urine [Recovered/Resolved]
  - Glucose urine present [Not Recovered/Not Resolved]
  - Lymphocyte percentage decreased [Not Recovered/Not Resolved]
  - Dysuria [Not Recovered/Not Resolved]
  - Bacterial test positive [Recovered/Resolved]
  - Malaise [Recovered/Resolved]
  - Lymphocyte count decreased [Not Recovered/Not Resolved]
  - Erythema [Recovered/Resolved]
  - Fatigue [Recovered/Resolved]
  - Headache [Recovered/Resolved]
  - Muscular weakness [Recovered/Resolved]
  - White blood cell count decreased [Recovered/Resolved]
  - Fall [Recovered/Resolved]
  - Blood test abnormal [Recovered/Resolved]
  - Urine analysis abnormal [Not Recovered/Not Resolved]
  - Contusion [Recovered/Resolved]
  - Red blood cell count decreased [Recovered/Resolved]
  - Oedema peripheral [Recovered/Resolved]
  - Urinary sediment present [Recovered/Resolved]
  - Pruritus generalised [Recovered/Resolved]
  - Hypoacusis [Recovered/Resolved]

NARRATIVE: CASE EVENT DATE: 201712
